FAERS Safety Report 24204934 (Version 1)
Quarter: 2024Q3

REPORT INFORMATION
  Report Type: Spontaneous
  Country: US (occurrence: US)
  Receive Date: 20240813
  Receipt Date: 20240813
  Transmission Date: 20241016
  Serious: Yes (Hospitalization)
  Sender: DR REDDYS
  Company Number: US-DRL-USA-LIT/USA/24/0011519

PATIENT
  Age: 67 Year
  Sex: Male

DRUGS (5)
  1. VASOPRESSIN [Suspect]
     Active Substance: VASOPRESSIN
     Indication: Shock
  2. VASOPRESSIN [Suspect]
     Active Substance: VASOPRESSIN
  3. VASOPRESSIN [Suspect]
     Active Substance: VASOPRESSIN
     Dosage: 0.8U/H
  4. NOREPINEPHRINE [Concomitant]
     Active Substance: NOREPINEPHRINE\NOREPINEPHRINE BITARTRATE
     Indication: Shock
  5. WARFARIN [Concomitant]
     Active Substance: WARFARIN
     Indication: Deep vein thrombosis

REACTIONS (2)
  - Polyuria [Unknown]
  - Withdrawal syndrome [Unknown]
